FAERS Safety Report 4427259-9 (Version None)
Quarter: 2004Q3

REPORT INFORMATION
  Report Type: 
  Country: None (occurrence: None)
  Receive Date: 20040813
  Receipt Date: 20040813
  Transmission Date: 20050211
  Serious: Yes (Other)
  Sender: FDA-Public Use
  Company Number: None

PATIENT
  Sex: Male
  Weight: 129.2752 kg

DRUGS (2)
  1. SOTALOL HCL [Suspect]
     Indication: ATRIAL FIBRILLATION
     Dosage: ONE PO BID
     Route: 048
     Dates: start: 20031001
  2. SOTALOL HCL [Suspect]
     Indication: CARDIOMYOPATHY
     Dosage: ONE PO BID
     Route: 048
     Dates: start: 20031001

REACTIONS (2)
  - DRUG INEFFECTIVE [None]
  - PHARMACEUTICAL PRODUCT COMPLAINT [None]
